FAERS Safety Report 7769840-5 (Version None)
Quarter: 2011Q3

REPORT INFORMATION
  Report Type: 
  Country: None (occurrence: None)
  Receive Date: 20110922
  Receipt Date: 20101012
  Transmission Date: 20111222
  Serious: No
  Sender: FDA-Public Use
  Company Number: US-ASTRAZENECA-2010SE47905

PATIENT
  Age: 55 Year
  Sex: Female
  Weight: 66.7 kg

DRUGS (6)
  1. SOVELLA [Concomitant]
  2. ESTROGRN PATCH [Concomitant]
  3. SEROQUEL [Suspect]
     Indication: DEPRESSION
     Route: 048
     Dates: start: 20080101
  4. SEROQUEL [Suspect]
     Route: 048
  5. NEXIUM [Concomitant]
     Route: 048
  6. NORCO [Concomitant]

REACTIONS (6)
  - DRUG DOSE OMISSION [None]
  - DEPRESSION [None]
  - INSOMNIA [None]
  - PANIC ATTACK [None]
  - NERVOUSNESS [None]
  - CRYING [None]
